FAERS Safety Report 9001020 (Version 1)
Quarter: 2013Q1

REPORT INFORMATION
  Report Type: Spontaneous
  Country: US (occurrence: None)
  Receive Date: 20130103
  Receipt Date: 20130103
  Transmission Date: 20140127
  Serious: Yes (Hospitalization, Other)
  Sender: FDA-Public Use
  Company Number: None

PATIENT
  Age: 81 Year
  Sex: Male
  Weight: 81.4 kg

DRUGS (1)
  1. ACYCLOVIR [Suspect]
     Indication: MENINGITIS HERPES
     Route: 041
     Dates: start: 20121107, end: 20121114

REACTIONS (1)
  - Toxic encephalopathy [None]
